FAERS Safety Report 18781377 (Version 1)
Quarter: 2021Q1

REPORT INFORMATION
  Report Type: Spontaneous
  Country: CA (occurrence: CA)
  Receive Date: 20210125
  Receipt Date: 20210125
  Transmission Date: 20210419
  Serious: Yes (Death)
  Sender: FDA-Public Use
  Company Number: CA-PFIZER INC-2021056166

PATIENT
  Age: 84 Year
  Sex: Female

DRUGS (2)
  1. IBRANCE [Suspect]
     Active Substance: PALBOCICLIB
     Dosage: 125 MG, DAILY
     Route: 048
     Dates: start: 20171010
  2. FULVESTRANT. [Concomitant]
     Active Substance: FULVESTRANT

REACTIONS (1)
  - Death [Fatal]

NARRATIVE: CASE EVENT DATE: 20200707
